FAERS Safety Report 4331379-7 (Version None)
Quarter: 2004Q1

REPORT INFORMATION
  Report Type: 
  Country: None (occurrence: None)
  Receive Date: 20040329
  Receipt Date: 20040311
  Transmission Date: 20041129
  Serious: Yes (Hospitalization, Other)
  Sender: FDA-Public Use
  Company Number: 175567

PATIENT
  Age: 39 Year
  Sex: Female
  Weight: 76.4765 kg

DRUGS (3)
  1. AVONEX [Suspect]
     Indication: MULTIPLE SCLEROSIS
     Dosage: 33 MCG QW IM
     Dates: start: 19990101, end: 20030630
  2. ADVIL [Concomitant]
  3. ALEVE [Concomitant]

REACTIONS (6)
  - DIALYSIS [None]
  - GASTRIC ULCER [None]
  - HEPATIC FAILURE [None]
  - HEPATITIS FULMINANT [None]
  - RENAL FAILURE ACUTE [None]
  - RENAL TUBULAR NECROSIS [None]
